FAERS Safety Report 4703733-2 (Version None)
Quarter: 2005Q2

REPORT INFORMATION
  Report Type: 
  Country: None (occurrence: None)
  Receive Date: 20050208
  Receipt Date: 20050208
  Transmission Date: 20051028
  Serious: Yes (Other)
  Sender: FDA-Public Use
  Company Number: None

PATIENT
  Sex: Male
  Weight: 25 kg

DRUGS (2)
  1. TIZANIDINE HCL [Suspect]
     Indication: MUSCLE SPASTICITY
     Dosage: 2MG DAILY
     Dates: start: 20020710
  2. BACLOFEN [Concomitant]

REACTIONS (2)
  - PHARMACEUTICAL PRODUCT COMPLAINT [None]
  - VOMITING [None]
